FAERS Safety Report 9244578 (Version 1)
Quarter: 2013Q2

REPORT INFORMATION
  Report Type: Report from Study
  Country: CA (occurrence: CA)
  Receive Date: 20130422
  Receipt Date: 20130422
  Transmission Date: 20140414
  Serious: Yes (Hospitalization)
  Sender: FDA-Public Use
  Company Number: CA-JNJFOC-20130407989

PATIENT
  Age: 50 Year
  Sex: Female
  Weight: 119 kg

DRUGS (3)
  1. REMICADE [Suspect]
     Indication: CROHN^S DISEASE
     Route: 042
     Dates: start: 20110409
  2. ATACAND [Concomitant]
     Route: 065
  3. IMURAN [Concomitant]
     Route: 065

REACTIONS (1)
  - Vaginal haemorrhage [Recovered/Resolved]
